FAERS Safety Report 7022023-9 (Version None)
Quarter: 2010Q3

REPORT INFORMATION
  Report Type: 
  Country: None (occurrence: None)
  Receive Date: 20100930
  Receipt Date: 20100921
  Transmission Date: 20110219
  Serious: Yes (Other)
  Sender: FDA-Public Use
  Company Number: PL-BAYER-201040742GPV

PATIENT
  Age: 23 Year
  Sex: Female

DRUGS (2)
  1. BETAFERON [Suspect]
     Indication: MULTIPLE SCLEROSIS
     Route: 058
     Dates: start: 20100101
  2. BETAFERON [Suspect]
     Route: 065
     Dates: end: 20090101

REACTIONS (2)
  - SKIN DISORDER [None]
  - SKIN NECROSIS [None]
